FAERS Safety Report 19093571 (Version 3)
Quarter: 2021Q3

REPORT INFORMATION
  Report Type: Spontaneous
  Country: IN (occurrence: IN)
  Receive Date: 20210405
  Receipt Date: 20210901
  Transmission Date: 20211014
  Serious: Yes (Other)
  Sender: FDA-Public Use
  Company Number: IN-PFIZER INC-2020493467

PATIENT
  Age: 54 Year
  Sex: Female

DRUGS (11)
  1. MOUTH WASH [Concomitant]
     Dosage: UNK
  2. DACOPLICE [Suspect]
     Active Substance: DACOMITINIB
     Dosage: 45 MG, 1X/DAY (OD)
     Route: 048
     Dates: start: 20201124
  3. ATIVAN [Concomitant]
     Active Substance: LORAZEPAM
     Dosage: 1 MG, DAILY (AT BED TIME)
  4. MEGASTY [Concomitant]
     Dosage: 160 MG, 1X/DAY
  5. DACOPLICE [Suspect]
     Active Substance: DACOMITINIB
     Dosage: 45 MG, 1X/DAY
     Route: 048
     Dates: start: 20190730
  6. FAMOTIDINE. [Concomitant]
     Active Substance: FAMOTIDINE
     Indication: HYPERCHLORHYDRIA
     Dosage: 20 MG
  7. HYDROCORTISONE. [Concomitant]
     Active Substance: HYDROCORTISONE
     Indication: RASH
     Dosage: UNK
     Route: 061
  8. LOMOTIL [LOPERAMIDE HYDROCHLORIDE] [Concomitant]
     Active Substance: LOPERAMIDE HYDROCHLORIDE
     Indication: DIARRHOEA
     Dosage: 1 DF
  9. ZOFER [Concomitant]
     Active Substance: ONDANSETRON HYDROCHLORIDE
     Indication: VOMITING
     Dosage: 8 MG
  10. ZOLDONAT [Concomitant]
     Dosage: 3 MG IN 100 ML NS IV OVER 30 MINS
  11. SHELCAL [CALCIUM;COLECALCIFEROL] [Concomitant]
     Active Substance: CALCIUM\CHOLECALCIFEROL
     Dosage: 1 DF, 1X/DAY

REACTIONS (7)
  - Nausea [Unknown]
  - Mucosal inflammation [Unknown]
  - Pain in extremity [Unknown]
  - Carcinoembryonic antigen increased [Unknown]
  - Neoplasm progression [Unknown]
  - Diarrhoea [Unknown]
  - Arthralgia [Unknown]

NARRATIVE: CASE EVENT DATE: 20190827
